FAERS Safety Report 13969667 (Version 1)
Quarter: 2017Q3

REPORT INFORMATION
  Report Type: Spontaneous
  Country: US (occurrence: US)
  Receive Date: 20170914
  Receipt Date: 20170914
  Transmission Date: 20171128
  Serious: No
  Sender: FDA-Public Use
  Company Number: US-ASTRAZENECA-2017SE93667

PATIENT
  Age: 3790 Week
  Sex: Female
  Weight: 81.6 kg

DRUGS (1)
  1. SYMBICORT [Suspect]
     Active Substance: BUDESONIDE\FORMOTEROL FUMARATE DIHYDRATE
     Indication: CHRONIC OBSTRUCTIVE PULMONARY DISEASE
     Dosage: 160/4.5 MICROGRAMS 120 INHALATIONS TWO PUFFS TWICE A DAY
     Route: 055
     Dates: start: 2012

REACTIONS (5)
  - Off label use [Not Recovered/Not Resolved]
  - Intentional product misuse [Unknown]
  - Device issue [Unknown]
  - Diarrhoea [Recovered/Resolved]
  - Vomiting [Recovered/Resolved]

NARRATIVE: CASE EVENT DATE: 20170904
